FAERS Safety Report 7160698-4 (Version None)
Quarter: 2010Q4

REPORT INFORMATION
  Report Type: 
  Country: None (occurrence: None)
  Receive Date: 20101214
  Receipt Date: 20091204
  Transmission Date: 20110411
  Serious: No
  Sender: FDA-Public Use
  Company Number: US-AMGEN-KDL378507

PATIENT

DRUGS (12)
  1. ENBREL [Suspect]
     Indication: PRODUCT USED FOR UNKNOWN INDICATION
     Dosage: 50 MG, UNK
  2. ALENDRONATE SODIUM [Concomitant]
     Dosage: 70 MG, UNK
  3. CELECOXIB [Concomitant]
     Dosage: 200 MG, UNK
  4. CETIRIZINE HYDROCHLORIDE [Concomitant]
     Dosage: 10 MG, UNK
  5. TOPROL-XL [Concomitant]
     Dosage: 25 MG, UNK
  6. ERGOCALCIFEROL [Concomitant]
     Dosage: 50000 IU, UNK
  7. FISH OIL [Concomitant]
     Dosage: UNK UNK, UNK
  8. OMEPRAZOLE [Concomitant]
     Dosage: 20 MG, UNK
  9. CALCIUM [Concomitant]
     Dosage: UNK UNK, UNK
  10. MULTI-VITAMINS [Concomitant]
     Dosage: UNK UNK, UNK
  11. ASPIRIN [Concomitant]
     Dosage: 81 MG, UNK
  12. GLUCOSAMINE W/CHONDROITIN SULFATES [Concomitant]
     Dosage: UNK UNK, UNK

REACTIONS (2)
  - ERYTHEMA [None]
  - PRURITUS [None]
